FAERS Safety Report 4564412-8 (Version None)
Quarter: 2005Q1

REPORT INFORMATION
  Report Type: 
  Country: None (occurrence: None)
  Receive Date: 20050128
  Receipt Date: 20031215
  Transmission Date: 20050727
  Serious: No
  Sender: FDA-Public Use
  Company Number: A0444052A

PATIENT
  Age: 36 Year
  Sex: Male

DRUGS (1)
  1. EPIVIR [Suspect]
     Indication: ILL-DEFINED DISORDER
     Route: 048

REACTIONS (4)
  - BLOOD CREATININE INCREASED [None]
  - BLOOD UREA INCREASED [None]
  - NAUSEA [None]
  - VOMITING [None]
